FAERS Safety Report 9939742 (Version 1)
Quarter: 2014Q1

REPORT INFORMATION
  Report Type: Spontaneous
  Country: US (occurrence: US)
  Receive Date: 20140303
  Receipt Date: 20140303
  Transmission Date: 20141002
  Serious: No
  Sender: FDA-Public Use
  Company Number: US-B.I. PHARMACEUTICALS,INC./RIDGEFIELD-2014-BI-07578BP

PATIENT
  Age: 56 Year
  Sex: Male

DRUGS (2)
  1. MIRAPEX [Suspect]
     Indication: PARKINSON^S DISEASE
     Route: 065
     Dates: start: 20130506
  2. MIRAPEX [Suspect]
     Route: 065
     Dates: start: 20130710, end: 20131112

REACTIONS (5)
  - Obsessive-compulsive disorder [Recovered/Resolved]
  - Cardiac disorder [Unknown]
  - Fluid retention [Unknown]
  - Oedema [Unknown]
  - Mood swings [Unknown]
